FAERS Safety Report 5249106-8 (Version None)
Quarter: 2007Q1

REPORT INFORMATION
  Report Type: 
  Country: None (occurrence: None)
  Receive Date: 20070228
  Receipt Date: 20060809
  Transmission Date: 20070707
  Serious: No
  Sender: FDA-Public Use
  Company Number: US-GLAXOSMITHKLINE-A0616083A

PATIENT
  Age: 18 Year
  Sex: Male

DRUGS (1)
  1. VALTREX [Suspect]
     Indication: INFECTIOUS MONONUCLEOSIS

REACTIONS (5)
  - DISCOMFORT [None]
  - DIZZINESS [None]
  - FATIGUE [None]
  - INSOMNIA [None]
  - THINKING ABNORMAL [None]
